FAERS Safety Report 17471991 (Version 1)
Quarter: 2020Q1

REPORT INFORMATION
  Report Type: Other
  Country: GB (occurrence: GB)
  Receive Date: 20200228
  Receipt Date: 20200228
  Transmission Date: 20200409
  Serious: Yes (Disabling, Other)
  Sender: FDA-Public Use
  Company Number: GB-LUPIN PHARMACEUTICALS INC.-2019-03045

PATIENT
  Age: 21 Year
  Sex: Female
  Weight: 49 kg

DRUGS (5)
  1. LEVEST [ETHINYLESTRADIOL;LEVONORGESTREL] [Concomitant]
     Indication: CONTRACEPTION
     Dosage: 1 DOSAGE FORM, TAKE ONE AS DIRECTED FOR CONTRACEPTION
     Route: 065
     Dates: start: 20190410
  2. FLUOXETINE [Concomitant]
     Active Substance: FLUOXETINE HYDROCHLORIDE
     Indication: PRODUCT USED FOR UNKNOWN INDICATION
     Dosage: UNK, USE AS DIRECTED
     Route: 065
     Dates: start: 20190314, end: 20190328
  3. CODEINE PHOSPHATE [Concomitant]
     Active Substance: CODEINE PHOSPHATE
     Indication: PAIN
     Dosage: 4 DOSAGE FORM, QD
     Route: 065
     Dates: start: 20190219, end: 20190226
  4. SERTRALINE HYDROCHLORIDE TABLETS [Suspect]
     Active Substance: SERTRALINE HYDROCHLORIDE
     Indication: PRODUCT USED FOR UNKNOWN INDICATION
     Dosage: 50 MILLIGRAM, QD
     Route: 048
     Dates: start: 20190416
  5. MIRTAZAPINE. [Concomitant]
     Active Substance: MIRTAZAPINE
     Indication: DEPRESSED MOOD
     Dosage: 1 DOSAGE FORM, QD, AT NIGHT TO HELP PREVENT LOW MOOD
     Route: 065
     Dates: start: 20190328, end: 20190404

REACTIONS (2)
  - Somnolence [Recovered/Resolved]
  - Syncope [Unknown]

NARRATIVE: CASE EVENT DATE: 20190418
